FAERS Safety Report 5117720-6 (Version None)
Quarter: 2006Q3

REPORT INFORMATION
  Report Type: 
  Country: None (occurrence: None)
  Receive Date: 20060926
  Receipt Date: 20060908
  Transmission Date: 20061208
  Serious: Yes (Hospitalization)
  Sender: FDA-Public Use
  Company Number: IE200608002330

PATIENT
  Age: 36 Year
  Sex: Female

DRUGS (7)
  1. ZYPREXA [Suspect]
     Indication: PSYCHOTIC DISORDER
     Dosage: SEE IMAGE
     Route: 048
     Dates: end: 20060705
  2. ZYPREXA [Suspect]
     Indication: PSYCHOTIC DISORDER
     Dosage: SEE IMAGE
     Route: 048
     Dates: start: 20060818
  3. HALOPERIDOL [Concomitant]
  4. METFORMIN HCL [Concomitant]
  5. LISINOPRIL [Concomitant]
  6. CILEST /GFR/ (ETHINYLESTRADIOL, NORGESTIMATE) [Concomitant]
  7. PANTOPRAZOLE SODIUM [Concomitant]

REACTIONS (4)
  - CONGESTIVE CARDIOMYOPATHY [None]
  - CYANOSIS [None]
  - ELECTROCARDIOGRAM ST SEGMENT DEPRESSION [None]
  - VENTRICULAR FAILURE [None]
